FAERS Safety Report 25543117 (Version 1)
Quarter: 2025Q3

REPORT INFORMATION
  Report Type: Spontaneous
  Country: EU (occurrence: None)
  Receive Date: 20250711
  Receipt Date: 20250711
  Transmission Date: 20251021
  Serious: Yes (Hospitalization, Other)
  Sender: ORION
  Company Number: None

PATIENT
  Age: 7 Year
  Sex: Female

DRUGS (2)
  1. METHOTREXATE [Suspect]
     Active Substance: METHOTREXATE
     Indication: Crohn^s disease
  2. ADALIMUMAB [Suspect]
     Active Substance: ADALIMUMAB
     Indication: Crohn^s disease

REACTIONS (3)
  - Crohn^s disease [Recovered/Resolved]
  - Therapeutic product effect decreased [Unknown]
  - Product use in unapproved indication [Unknown]
